FAERS Safety Report 4789285-X (Version None)
Quarter: 2005Q3

REPORT INFORMATION
  Report Type: 
  Country: None (occurrence: None)
  Receive Date: 20050929
  Receipt Date: 20050818
  Transmission Date: 20060218
  Serious: No
  Sender: FDA-Public Use
  Company Number: 05P-163-0308472-00

PATIENT
  Age: 61 Year
  Sex: Female
  Weight: 81.6475 kg

DRUGS (16)
  1. HUMIRA [Suspect]
     Indication: RHEUMATOID ARTHRITIS
     Dosage: 40 MG, 1 IN 2 WK, SUBCUTANEOUS
     Route: 058
     Dates: start: 20040701, end: 20050701
  2. HUMIRA [Suspect]
     Indication: RHEUMATOID ARTHRITIS
     Dosage: 40 MG, 1 IN 2 WK, SUBCUTANEOUS
     Route: 058
     Dates: start: 20050701
  3. ALBUTERAL [Concomitant]
  4. SPIRIVA [Concomitant]
  5. FLUTICASONE PROPIONATE [Concomitant]
  6. VOSPIRE [Concomitant]
  7. BUDESONIDE [Concomitant]
  8. LORETIDINE [Concomitant]
  9. LOSARTAN POTASSIUM [Concomitant]
  10. METHOTREXATE SODIUM [Concomitant]
  11. FOLIC ACID [Concomitant]
  12. RANITIDINE HYDROCHLORIDE [Concomitant]
  13. DARVOCET [Concomitant]
  14. PREDNISONE [Concomitant]
  15. RALOXIFENE HYDROCHLORIDE [Concomitant]
  16. VITAMINS [Concomitant]

REACTIONS (1)
  - URINARY TRACT INFECTION [None]
